FAERS Safety Report 9302409 (Version 2)
Quarter: 2013Q2

REPORT INFORMATION
  Report Type: Spontaneous
  Country: US (occurrence: US)
  Receive Date: 20130522
  Receipt Date: 20130524
  Transmission Date: 20140414
  Serious: No
  Sender: FDA-Public Use
  Company Number: US-BIOGENIDEC-2013BI045079

PATIENT
  Age: 51 Year
  Sex: Female

DRUGS (2)
  1. TYSABRI [Suspect]
     Indication: MULTIPLE SCLEROSIS
     Route: 042
     Dates: start: 20120508, end: 20130219
  2. AVONEX [Concomitant]
     Indication: MULTIPLE SCLEROSIS
     Route: 030
     Dates: start: 20080601

REACTIONS (10)
  - Fall [Not Recovered/Not Resolved]
  - Cough [Not Recovered/Not Resolved]
  - Hypophagia [Unknown]
  - Bladder disorder [Unknown]
  - Gastrointestinal disorder [Unknown]
  - Diplopia [Not Recovered/Not Resolved]
  - Malaise [Recovered/Resolved]
  - Respiratory tract infection [Recovered/Resolved]
  - Asthenia [Unknown]
  - Nausea [Not Recovered/Not Resolved]
